FAERS Safety Report 19991679 (Version 1)
Quarter: 2021Q4

REPORT INFORMATION
  Report Type: Spontaneous
  Country: US (occurrence: US)
  Receive Date: 20211025
  Receipt Date: 20211025
  Transmission Date: 20220303
  Serious: No
  Sender: FDA-Public Use
  Company Number: US-PFIZER INC-2021547067

PATIENT
  Age: 55 Year
  Sex: Female
  Weight: 70.75 kg

DRUGS (1)
  1. METOPROLOL TARTRATE [Suspect]
     Active Substance: METOPROLOL TARTRATE
     Dosage: UNK

REACTIONS (3)
  - Fatigue [Unknown]
  - Decreased appetite [Unknown]
  - Blood pressure increased [Unknown]
